FAERS Safety Report 9837857 (Version 1)
Quarter: 2013Q4

REPORT INFORMATION
  Report Type: Spontaneous
  Country: US (occurrence: None)
  Receive Date: 20131205
  Receipt Date: 20131205
  Transmission Date: 20140711
  Serious: No
  Sender: FDA-Public Use
  Company Number: 163-POMAL-13104378

PATIENT
  Age: 49 Year
  Sex: Female
  Weight: 65.8 kg

DRUGS (9)
  1. POMALYST [Suspect]
     Indication: PLASMA CELL MYELOMA
     Dosage: 21 IN 28 D; TEMPORARILY
     Route: 048
     Dates: start: 201307
  2. PROTONIX [Concomitant]
  3. DEXAMETHASONE (DEXAMETHASONE) [Concomitant]
  4. ZOMETA (ZOLEDRONIC ACID) [Concomitant]
  5. FENTANYL (FENTANYL) [Concomitant]
  6. PROCHLORPERAZINE (PROCHLORPERAZINE) [Concomitant]
  7. WARFARIN SODIUM (WARFARIN SODIUM) [Concomitant]
  8. VELCADE (BORTEZOMIB) [Concomitant]
  9. ATIVAN (LORAZEPAM) [Concomitant]

REACTIONS (2)
  - Laboratory test abnormal [None]
  - Drug dose omission [None]
